FAERS Safety Report 10334727 (Version 2)
Quarter: 2014Q3

REPORT INFORMATION
  Report Type: Spontaneous
  Country: US (occurrence: US)
  Receive Date: 20140723
  Receipt Date: 20140912
  Transmission Date: 20150326
  Serious: Yes (Other)
  Sender: FDA-Public Use
  Company Number: US-TAKEDA-2014TUS006437

PATIENT
  Age: 50 Year
  Sex: Female
  Weight: 88.89 kg

DRUGS (7)
  1. ENTYVIO [Suspect]
     Active Substance: VEDOLIZUMAB
     Indication: CROHN^S DISEASE
     Dosage: 300 MG, 1 DOSE
     Route: 042
     Dates: start: 20140714, end: 20140714
  2. ZOFRAN                             /00955301/ [Concomitant]
     Active Substance: ONDANSETRON HYDROCHLORIDE
  3. AMBIEN [Concomitant]
     Active Substance: ZOLPIDEM TARTRATE
  4. LORAZEPAM. [Concomitant]
     Active Substance: LORAZEPAM
  5. PREDNISONE. [Concomitant]
     Active Substance: PREDNISONE
     Indication: CROHN^S DISEASE
     Dosage: 20 MG, QD
     Dates: start: 20140224
  6. OMEPRAZOLE. [Concomitant]
     Active Substance: OMEPRAZOLE
     Indication: GASTROOESOPHAGEAL REFLUX DISEASE
     Dosage: 20 MG, UNK
     Route: 048
     Dates: start: 20130617
  7. FIORICET [Concomitant]
     Active Substance: ACETAMINOPHEN\BUTALBITAL\CAFFEINE
     Indication: MIGRAINE
     Dosage: 1 DF, Q6HR PRN
     Route: 048
     Dates: start: 20140205

REACTIONS (4)
  - Bone pain [Unknown]
  - Blindness unilateral [Recovering/Resolving]
  - Headache [Not Recovered/Not Resolved]
  - Hypoaesthesia [Recovering/Resolving]

NARRATIVE: CASE EVENT DATE: 201407
